FAERS Safety Report 11837662 (Version 1)
Quarter: 2015Q4

REPORT INFORMATION
  Report Type: Spontaneous
  Country: DE (occurrence: DE)
  Receive Date: 20151215
  Receipt Date: 20151215
  Transmission Date: 20160305
  Serious: Yes (Life-Threatening, Hospitalization)
  Sender: FDA-Public Use
  Company Number: DE-009507513-1512DEU001161

PATIENT
  Age: 63 Year
  Sex: Female

DRUGS (2)
  1. KEYTRUDA [Suspect]
     Active Substance: PEMBROLIZUMAB
     Indication: METASTATIC MALIGNANT MELANOMA
  2. KEYTRUDA [Suspect]
     Active Substance: PEMBROLIZUMAB
     Indication: METASTATIC MALIGNANT MELANOMA
     Dosage: UNK
     Dates: end: 201512

REACTIONS (6)
  - Skin toxicity [Unknown]
  - Thyroiditis [Not Recovered/Not Resolved]
  - Abdominal abscess [Unknown]
  - Peritonitis [Recovered/Resolved]
  - Thyroid disorder [Unknown]
  - Peritonitis [Not Recovered/Not Resolved]

NARRATIVE: CASE EVENT DATE: 20151123
